FAERS Safety Report 6007420-2 (Version None)
Quarter: 2008Q4

REPORT INFORMATION
  Report Type: 
  Country: None (occurrence: None)
  Receive Date: 20081217
  Receipt Date: 20080414
  Transmission Date: 20090506
  Serious: No
  Sender: FDA-Public Use
  Company Number: US-ASTRAZENECA-2008UW07649

PATIENT
  Age: 50 Year
  Sex: Male
  Weight: 86.2 kg

DRUGS (4)
  1. CRESTOR [Suspect]
     Indication: BLOOD CHOLESTEROL INCREASED
     Route: 048
  2. CRESTOR [Suspect]
     Route: 048
  3. ACTONEL [Concomitant]
  4. EXFORGE [Concomitant]
     Indication: BLOOD PRESSURE

REACTIONS (3)
  - ARTHRITIS [None]
  - ARTHROPATHY [None]
  - MUSCULAR WEAKNESS [None]
